FAERS Safety Report 11502420 (Version 1)
Quarter: 2015Q3

REPORT INFORMATION
  Report Type: Spontaneous
  Country: US (occurrence: US)
  Receive Date: 20150914
  Receipt Date: 20150914
  Transmission Date: 20151125
  Serious: No
  Sender: FDA-Public Use
  Company Number: US-ASTELLAS-2015US020876

PATIENT
  Sex: Male

DRUGS (2)
  1. XTANDI [Suspect]
     Active Substance: ENZALUTAMIDE
     Route: 065
     Dates: end: 20150601
  2. XTANDI [Suspect]
     Active Substance: ENZALUTAMIDE
     Indication: PROSTATE CANCER
     Route: 065
     Dates: start: 201503

REACTIONS (8)
  - Tremor [Not Recovered/Not Resolved]
  - Joint swelling [Recovered/Resolved]
  - Peripheral swelling [Recovered/Resolved]
  - Fatigue [Not Recovered/Not Resolved]
  - Prostatic specific antigen increased [Unknown]
  - Asthenia [Unknown]
  - Rash [Recovering/Resolving]
  - Prescribed underdose [Unknown]
